FAERS Safety Report 23574643 (Version 2)
Quarter: 2024Q1

REPORT INFORMATION
  Report Type: Spontaneous
  Country: BR (occurrence: BR)
  Receive Date: 20240228
  Receipt Date: 20240306
  Transmission Date: 20240409
  Serious: Yes (Other)
  Sender: FDA-Public Use
  Company Number: BR-002147023-NVSC2024BR039779

PATIENT
  Age: 46 Year
  Sex: Female
  Weight: 67 kg

DRUGS (5)
  1. ZOMETA [Suspect]
     Active Substance: ZOLEDRONIC ACID
     Indication: Metastases to bone
     Dosage: UNK UNK, QMO
     Route: 042
     Dates: start: 202201, end: 202312
  2. AMLODIPINE [Suspect]
     Active Substance: AMLODIPINE BESYLATE
     Indication: Hypertension
     Dosage: 1 DOSAGE FORM, BID (1 TABLET AT NIGHT AND ANOTHER IN THE MORNING)
     Route: 048
     Dates: start: 2022
  3. TAMOXIFEN [Concomitant]
     Active Substance: TAMOXIFEN
     Indication: Product used for unknown indication
     Dosage: UNK
     Route: 065
  4. ANASTROZOLE [Concomitant]
     Active Substance: ANASTROZOLE
     Indication: Product used for unknown indication
     Dosage: 1 DOSAGE FORM, QD (1 TABLET PER DAY)
     Route: 048
     Dates: start: 202310
  5. ENALAPRIL [Concomitant]
     Active Substance: ENALAPRIL
     Indication: Hypertension
     Dosage: 2 DOSAGE FORM, BID (2 TABLETS AT MORNING AND 2 AT NIGHT)
     Route: 048
     Dates: start: 2022

REACTIONS (2)
  - Hepatic cancer metastatic [Unknown]
  - Malignant neoplasm progression [Unknown]

NARRATIVE: CASE EVENT DATE: 20231001
